FAERS Safety Report 23941978 (Version 3)
Quarter: 2025Q1

REPORT INFORMATION
  Report Type: Spontaneous
  Country: US (occurrence: US)
  Receive Date: 20240605
  Receipt Date: 20250222
  Transmission Date: 20250408
  Serious: No
  Sender: SANOFI AVENTIS
  Company Number: US-SA-SAC20240604000341

PATIENT
  Age: 35 Year
  Sex: Female
  Weight: 50.9 kg

DRUGS (3)
  1. CAPRELSA [Suspect]
     Active Substance: VANDETANIB
     Indication: Thyroid cancer
     Dosage: 100 MG, QD
     Route: 048
     Dates: start: 2015
  2. LEVOTHYROXINE SODIUM [Concomitant]
     Active Substance: LEVOTHYROXINE SODIUM
  3. LEVOTHYROXINE SODIUM [Concomitant]
     Active Substance: LEVOTHYROXINE SODIUM

REACTIONS (13)
  - Breast pain [Not Recovered/Not Resolved]
  - Emotional disorder [Not Recovered/Not Resolved]
  - Blood thyroid stimulating hormone decreased [Not Recovered/Not Resolved]
  - Nasopharyngitis [Unknown]
  - Erythema [Unknown]
  - Affective disorder [Recovering/Resolving]
  - Condition aggravated [Recovering/Resolving]
  - Sensitive skin [Unknown]
  - Fatigue [Not Recovered/Not Resolved]
  - Rash [Unknown]
  - Acne [Recovered/Resolved]
  - Pruritus [Unknown]
  - Product dose omission in error [Unknown]
